FAERS Safety Report 13360528 (Version 1)
Quarter: 2017Q1

REPORT INFORMATION
  Report Type: Spontaneous
  Country: BR (occurrence: BR)
  Receive Date: 20170322
  Receipt Date: 20170322
  Transmission Date: 20170429
  Serious: Yes (Other)
  Sender: FDA-Public Use
  Company Number: BR-GLAXOSMITHKLINE-BR2017GSK039990

PATIENT
  Sex: Male

DRUGS (3)
  1. SERETIDE [Suspect]
     Active Substance: FLUTICASONE PROPIONATE\SALMETEROL XINAFOATE
     Indication: PRODUCT USED FOR UNKNOWN INDICATION
     Dosage: 1 PUFF(S), QID
     Route: 055
  2. FORASEQ [Concomitant]
     Active Substance: BUDESONIDE\FORMOTEROL FUMARATE
  3. AEROLIN [Concomitant]
     Active Substance: ALBUTEROL

REACTIONS (5)
  - Asthmatic crisis [Unknown]
  - Product lot number issue [Unknown]
  - Overdose [Unknown]
  - Product quality issue [Unknown]
  - Expired product administered [Unknown]
